FAERS Safety Report 18365700 (Version 3)
Quarter: 2021Q2

REPORT INFORMATION
  Report Type: Spontaneous
  Country: CA (occurrence: CA)
  Receive Date: 20201009
  Receipt Date: 20210625
  Transmission Date: 20210717
  Serious: Yes (Life-Threatening, Hospitalization, Other)
  Sender: FDA-Public Use
  Company Number: CA-SA-2020SA275269

PATIENT
  Age: 9 Year
  Sex: Male
  Weight: 24 kg

DRUGS (54)
  1. ALEMTUZUMAB [Suspect]
     Active Substance: ALEMTUZUMAB
     Indication: HAEMOPHAGOCYTIC LYMPHOHISTIOCYTOSIS
     Dosage: 12.5 MG
     Route: 042
  2. METHOTREXATE. [Suspect]
     Active Substance: METHOTREXATE
     Dosage: 1 DF, SOLUTION DOSAGE FORMS
     Route: 037
  3. BUSULFAN. [Suspect]
     Active Substance: BUSULFAN
     Indication: HAEMOPHAGOCYTIC LYMPHOHISTIOCYTOSIS
     Dosage: 80 MG
     Dates: start: 2017, end: 2017
  4. CEFTAZIDIME. [Concomitant]
     Active Substance: CEFTAZIDIME
     Dosage: FORMULATION: POWDER FOR SOLUTION
     Route: 065
  5. FAMCICLOVIR. [Concomitant]
     Active Substance: FAMCICLOVIR
  6. PROBENECID. [Concomitant]
     Active Substance: PROBENECID
  7. ALEMTUZUMAB [Suspect]
     Active Substance: ALEMTUZUMAB
     Dosage: 12.5 MG
     Route: 042
  8. ALEMTUZUMAB [Suspect]
     Active Substance: ALEMTUZUMAB
     Dosage: 24 MG
     Route: 042
  9. ALEMTUZUMAB [Suspect]
     Active Substance: ALEMTUZUMAB
     Dosage: 6.25 MG
     Route: 042
     Dates: start: 2017, end: 2017
  10. HYDROCORTISONE. [Suspect]
     Active Substance: HYDROCORTISONE
     Dosage: UNK
     Route: 030
     Dates: start: 2017, end: 2017
  11. HYDROCORTISONE. [Suspect]
     Active Substance: HYDROCORTISONE
     Dosage: UNK
     Route: 030
  12. FLUDARABINE [Suspect]
     Active Substance: FLUDARABINE PHOSPHATE
     Indication: HAEMOPHAGOCYTIC LYMPHOHISTIOCYTOSIS
     Dosage: 27 MG
     Route: 042
     Dates: start: 2017, end: 2017
  13. FOSCAVIR [Suspect]
     Active Substance: FOSCARNET SODIUM
     Dosage: INJECTION? LIQ
     Route: 042
  14. DIVALPROEX SODIUM. [Concomitant]
     Active Substance: DIVALPROEX SODIUM
  15. POLYETHYLENE GLYCOL COMPOUND [Concomitant]
  16. RANITIDINE. [Concomitant]
     Active Substance: RANITIDINE
  17. ALTEPLASE. [Concomitant]
     Active Substance: ALTEPLASE
     Route: 042
  18. EPINEPHRINE. [Concomitant]
     Active Substance: EPINEPHRINE
     Dosage: SOLUTION DOSAGE FORM
     Route: 030
  19. FILGRASTIM [Concomitant]
     Active Substance: FILGRASTIM
  20. METHYLPREDNISOLONE. [Concomitant]
     Active Substance: METHYLPREDNISOLONE
  21. MORPHINE SULFATE. [Concomitant]
     Active Substance: MORPHINE SULFATE
     Dosage: INJ
  22. SULFAMETHOXAZOLE AND TRIMETHOPRIM [Concomitant]
     Active Substance: SULFAMETHOXAZOLE\TRIMETHOPRIM
     Dosage: SUSPENSION DOSAGE FORM
  23. ACETAMINOPHEN. [Concomitant]
     Active Substance: ACETAMINOPHEN
  24. CYTARABINE. [Suspect]
     Active Substance: CYTARABINE
     Dosage: UNK
     Route: 037
     Dates: start: 2017, end: 2017
  25. LORATADINE. [Concomitant]
     Active Substance: LORATADINE
  26. OXYBUTYNINE [OXYBUTYNIN] [Concomitant]
     Active Substance: OXYBUTYNIN
  27. VALPROIC ACID. [Concomitant]
     Active Substance: VALPROIC ACID
  28. AMOXICILLIN. [Concomitant]
     Active Substance: AMOXICILLIN
  29. CHLORHEXIDINE [Concomitant]
     Active Substance: CHLORHEXIDINE
  30. FLUCONAZOLE. [Concomitant]
     Active Substance: FLUCONAZOLE
  31. GANCICLOVIR. [Concomitant]
     Active Substance: GANCICLOVIR
     Dosage: POWDER FOR SOLUTION
     Route: 037
  32. TOBRAMYCIN. [Concomitant]
     Active Substance: TOBRAMYCIN
  33. ALEMTUZUMAB [Suspect]
     Active Substance: ALEMTUZUMAB
     Dosage: 12 MG
     Route: 042
  34. CEPHALEXIN [CEFALEXIN] [Concomitant]
     Active Substance: CEPHALEXIN
  35. DIPHENHYDRAMINE. [Concomitant]
     Active Substance: DIPHENHYDRAMINE
     Route: 065
  36. FUROSEMIDE. [Concomitant]
     Active Substance: FUROSEMIDE
  37. LANSOPRAZOLE. [Concomitant]
     Active Substance: LANSOPRAZOLE
     Dosage: CAPSULE DELAYED RELEASE
  38. ONDANSETRON [Concomitant]
     Active Substance: ONDANSETRON
  39. PHOSPHATES [SODIUM PHOSPHATE] [Concomitant]
     Active Substance: SODIUM PHOSPHATE
  40. SIROLIMUS. [Concomitant]
     Active Substance: SIROLIMUS
  41. ALEMTUZUMAB [Suspect]
     Active Substance: ALEMTUZUMAB
     Dosage: 25 MG
     Route: 042
  42. ALEMTUZUMAB [Suspect]
     Active Substance: ALEMTUZUMAB
     Dosage: 12.5 MG
     Route: 042
  43. CYCLOPHOSPHAMIDE. [Suspect]
     Active Substance: CYCLOPHOSPHAMIDE
     Dosage: 1250 MG
     Route: 042
     Dates: start: 2017, end: 2017
  44. CHOLECALCIFEROL [Concomitant]
     Active Substance: CHOLECALCIFEROL
  45. DEXAMETHASONE. [Concomitant]
     Active Substance: DEXAMETHASONE
     Dosage: LIQUID DOSAGE FORM
     Route: 014
  46. LORAZEPAM. [Concomitant]
     Active Substance: LORAZEPAM
  47. NIFEDIPINE. [Concomitant]
     Active Substance: NIFEDIPINE
     Dosage: TABLET (EXTENDED RELEASE)
  48. METHOTREXATE. [Suspect]
     Active Substance: METHOTREXATE
     Indication: HAEMOPHAGOCYTIC LYMPHOHISTIOCYTOSIS
     Dosage: 1 DF, SOLUTION DOSAGE FORMS
     Route: 037
     Dates: start: 2017, end: 2017
  49. CLOTRIMAZOLE. [Concomitant]
     Active Substance: CLOTRIMAZOLE
  50. HEPARIN CALCIUM [Concomitant]
     Active Substance: HEPARIN CALCIUM
  51. LIDOCAINE. [Concomitant]
     Active Substance: LIDOCAINE
     Dosage: UNK
     Route: 061
  52. MESNA. [Concomitant]
     Active Substance: MESNA
  53. PREDNISONE. [Concomitant]
     Active Substance: PREDNISONE
  54. VISTIDE [Concomitant]
     Active Substance: CIDOFOVIR
     Dosage: LIQUID INTRAVENOUS DOSAGE FORM
     Route: 042

REACTIONS (7)
  - Aplastic anaemia [Recovered/Resolved]
  - Adenovirus infection [Unknown]
  - Lip haemorrhage [Unknown]
  - Stomatitis [Unknown]
  - Epistaxis [Unknown]
  - Respiratory distress [Unknown]
  - Platelet transfusion [Unknown]

NARRATIVE: CASE EVENT DATE: 20171106
